FAERS Safety Report 4482458-5 (Version None)
Quarter: 2004Q4

REPORT INFORMATION
  Report Type: 
  Country: None (occurrence: None)
  Receive Date: 20041022
  Receipt Date: 20040325
  Transmission Date: 20050328
  Serious: Yes (Death, Life-Threatening, Disabling, Other)
  Sender: FDA-Public Use
  Company Number: US-GLAXOSMITHKLINE-A0504598A

PATIENT
  Age: 18 Year
  Sex: Male
  Weight: 72.7 kg

DRUGS (2)
  1. PAXIL [Suspect]
     Indication: DEPRESSION
     Dosage: 10MG PER DAY
     Route: 048
     Dates: start: 20001023
  2. XANAX [Concomitant]
     Indication: DEPRESSION
     Dosage: .5MG TWICE PER DAY
     Route: 048
     Dates: start: 20001023

REACTIONS (2)
  - COMPLETED SUICIDE [None]
  - GUN SHOT WOUND [None]
